FAERS Safety Report 7225397-9 (Version None)
Quarter: 2011Q1

REPORT INFORMATION
  Report Type: 
  Country: None (occurrence: None)
  Receive Date: 20110113
  Receipt Date: 20101206
  Transmission Date: 20110831
  Serious: No
  Sender: FDA-Public Use
  Company Number: JP-ASTRAZENECA-2010SE52371

PATIENT
  Age: 77 Year
  Sex: Male

DRUGS (3)
  1. BLOPRESS [Suspect]
     Indication: HYPERTENSION
     Route: 048
     Dates: start: 20100611
  2. CRESTOR [Concomitant]
     Indication: HYPERCHOLESTEROLAEMIA
     Route: 048
     Dates: start: 20100611
  3. SUNRYTHM [Concomitant]
     Indication: ARRHYTHMIA
     Route: 048
     Dates: start: 20100611

REACTIONS (2)
  - HAEMORRHOIDAL HAEMORRHAGE [None]
  - ANAEMIA [None]
